FAERS Safety Report 15231950 (Version 1)
Quarter: 2018Q3

REPORT INFORMATION
  Report Type: Spontaneous
  Country: US (occurrence: US)
  Receive Date: 20180708
  Receipt Date: 20180708
  Transmission Date: 20181010
  Serious: Yes (Other)
  Sender: FDA-Public Use
  Company Number: None

PATIENT
  Age: 8 Year
  Sex: Female
  Weight: 21.6 kg

DRUGS (1)
  1. DRAMAMINE FOR KIDS [Suspect]
     Active Substance: DIMENHYDRINATE
     Indication: MOTION SICKNESS
     Dosage: ?          QUANTITY:1 DF DOSAGE FORM;?
     Route: 048
     Dates: start: 20180708, end: 20180708

REACTIONS (10)
  - Micturition urgency [None]
  - Agitation [None]
  - Headache [None]
  - Paraesthesia [None]
  - Heart rate increased [None]
  - Confusional state [None]
  - Tremor [None]
  - Abdominal pain [None]
  - Hypoaesthesia [None]
  - Hallucination [None]

NARRATIVE: CASE EVENT DATE: 20180708
